FAERS Safety Report 24664575 (Version 2)
Quarter: 2024Q4

REPORT INFORMATION
  Report Type: Report from Study
  Country: US (occurrence: US)
  Receive Date: 20241126
  Receipt Date: 20241205
  Transmission Date: 20250115
  Serious: Yes (Hospitalization)
  Sender: MERCK
  Company Number: US-009507513-2408USA010436

PATIENT
  Sex: Male
  Weight: 104.31 kg

DRUGS (9)
  1. SOTATERCEPT [Suspect]
     Active Substance: SOTATERCEPT
     Indication: Pulmonary arterial hypertension
     Dosage: 0.6 MILLILITER, Q3W, STRENGTH: 45 MG
     Route: 058
     Dates: start: 202408, end: 202408
  2. WINREVAIR [Suspect]
     Active Substance: SOTATERCEPT-CSRK
     Indication: Pulmonary arterial hypertension
     Dosage: 1.5 MILLILITER, Q3W
     Route: 058
     Dates: start: 202408, end: 202408
  3. WINREVAIR [Suspect]
     Active Substance: SOTATERCEPT-CSRK
     Indication: Pulmonary arterial hypertension
     Dosage: 0.6 MILLILITER, Q3W
     Route: 058
     Dates: start: 202408, end: 202408
  4. WINREVAIR [Suspect]
     Active Substance: SOTATERCEPT-CSRK
     Indication: Pulmonary arterial hypertension
     Dosage: 0.6 MILLILITER, Q3W
     Route: 058
     Dates: start: 202408
  5. TYVASO DPI [Suspect]
     Active Substance: TREPROSTINIL
     Indication: Pulmonary arterial hypertension
     Dosage: 6 MICROGRAM (8 BREATHS), QID
     Dates: start: 202408, end: 202408
  6. TYVASO DPI [Suspect]
     Active Substance: TREPROSTINIL
     Dosage: 6 MICROGRAM (8 BREATHS), QID
     Dates: start: 202409, end: 202409
  7. OPSUMIT [Concomitant]
     Active Substance: MACITENTAN
     Dosage: UNK
  8. TADALAFIL [Concomitant]
     Active Substance: TADALAFIL
     Dosage: UNK
  9. UPTRAVI [Concomitant]
     Active Substance: SELEXIPAG
     Dosage: 800 MICROGRAM, BID

REACTIONS (7)
  - COVID-19 [Recovering/Resolving]
  - Inner ear disorder [Unknown]
  - Mouth haemorrhage [Unknown]
  - Polycythaemia [Unknown]
  - Dizziness [Recovered/Resolved]
  - Nasopharyngitis [Unknown]
  - Epistaxis [Unknown]

NARRATIVE: CASE EVENT DATE: 20240101
